FAERS Safety Report 9889630 (Version 10)
Quarter: 2016Q1

REPORT INFORMATION
  Report Type: Other
  Country: GB (occurrence: GB)
  Receive Date: 20140211
  Receipt Date: 20160309
  Transmission Date: 20160526
  Serious: Yes (Life-Threatening, Hospitalization, Other)
  Sender: FDA-Public Use
  Company Number: GB-MYLANLABS-2014S1001970

PATIENT

DRUGS (4)
  1. CODEINE [Suspect]
     Active Substance: CODEINE
     Indication: PRODUCT USED FOR UNKNOWN INDICATION
     Dosage: UNK
  2. CITALOPRAM [Suspect]
     Active Substance: CITALOPRAM HYDROBROMIDE
     Indication: PRODUCT USED FOR UNKNOWN INDICATION
     Dosage: UNK
  3. TOPAMAX [Suspect]
     Active Substance: TOPIRAMATE
     Indication: EPILEPSY
     Dosage: UNK
     Route: 048
     Dates: start: 201105, end: 2011
  4. TRAMADOL. [Suspect]
     Active Substance: TRAMADOL
     Indication: PRODUCT USED FOR UNKNOWN INDICATION
     Dosage: UNK

REACTIONS (18)
  - Overdose [Recovered/Resolved]
  - Aggression [Recovered/Resolved]
  - Personality change [Recovered/Resolved]
  - Brain oedema [Recovered/Resolved]
  - Seizure [Recovered/Resolved]
  - Borderline personality disorder [Recovered/Resolved]
  - Metabolic acidosis [Recovered/Resolved]
  - Dialysis [Recovered/Resolved]
  - Migraine [Unknown]
  - Coma [Recovered/Resolved]
  - Life support [Recovered/Resolved]
  - Dysarthria [Unknown]
  - Organ failure [Recovered/Resolved]
  - Anger [Recovered/Resolved]
  - Hypersensitivity [Recovered/Resolved]
  - Acidosis [Recovered/Resolved]
  - Weight decreased [Recovered/Resolved]
  - Cerebral haemorrhage [Unknown]

NARRATIVE: CASE EVENT DATE: 2011
